FAERS Safety Report 17805816 (Version 1)
Quarter: 2020Q2

REPORT INFORMATION
  Report Type: Spontaneous
  Country: CN (occurrence: CN)
  Receive Date: 20200519
  Receipt Date: 20200519
  Transmission Date: 20200714
  Serious: Yes (Hospitalization)
  Sender: FDA-Public Use
  Company Number: CN-BAXTER-2020BAX010341

PATIENT
  Age: 47 Year
  Sex: Female
  Weight: 60 kg

DRUGS (6)
  1. ENDOXAN [Suspect]
     Active Substance: CYCLOPHOSPHAMIDE
     Indication: BREAST CANCER RECURRENT
     Dosage: ENDOXAN + 0.9% NS 100 ML
     Route: 041
     Dates: start: 20200507, end: 20200507
  2. EPIRUBICIN HYDROCHLORIDE. [Suspect]
     Active Substance: EPIRUBICIN HYDROCHLORIDE
     Indication: BREAST CANCER RECURRENT
     Dosage: EPIRUBICIN HYDROCHLORIDE + 0.9% NS 100 ML
     Route: 041
     Dates: start: 20200507, end: 20200507
  3. 0.9% SODIUM CHLORIDE INJECTION [Suspect]
     Active Substance: SODIUM CHLORIDE
     Indication: MEDICATION DILUTION
     Dosage: ENDOXAN 0.80 GRAM+ 0.9% NS
     Route: 041
     Dates: start: 20200507, end: 20200507
  4. 0.9% SODIUM CHLORIDE INJECTION [Suspect]
     Active Substance: SODIUM CHLORIDE
     Dosage: AOMINGRUN 120 MG+ 0. 9% NS
     Route: 041
     Dates: start: 20200507, end: 20200507
  5. 0.9% SODIUM CHLORIDE INJECTION [Suspect]
     Active Substance: SODIUM CHLORIDE
     Dosage: EPIRUBICIN HYDROCHLORIDE 140 MG+ 0. 9% NS
     Route: 041
     Dates: start: 20200507, end: 20200507
  6. AOMINGRUN [Suspect]
     Active Substance: DOCETAXEL
     Indication: BREAST CANCER RECURRENT
     Dosage: AOMINGRUN + 0.9% NS 250 ML
     Route: 041
     Dates: start: 20200507, end: 20200507

REACTIONS (1)
  - White blood cell count decreased [Recovered/Resolved]

NARRATIVE: CASE EVENT DATE: 20200509
